FAERS Safety Report 14958426 (Version 1)
Quarter: 2018Q2

REPORT INFORMATION
  Report Type: Spontaneous
  Country: FR (occurrence: FR)
  Receive Date: 20180531
  Receipt Date: 20180531
  Transmission Date: 20180711
  Serious: Yes (Hospitalization)
  Sender: FDA-Public Use
  Company Number: FR-AUROBINDO-AUR-APL-2018-012347

PATIENT
  Age: 55 Year
  Sex: Female
  Weight: 73 kg

DRUGS (10)
  1. DEPAMIDE [Suspect]
     Active Substance: VALPROMIDE
     Indication: BRIEF PSYCHOTIC DISORDER WITH MARKED STRESSORS
     Route: 048
     Dates: start: 201709, end: 20171109
  2. MIRTAZAPINE. [Suspect]
     Active Substance: MIRTAZAPINE
     Indication: PRODUCT USED FOR UNKNOWN INDICATION
     Route: 048
     Dates: start: 201709
  3. BRINTELLIX [Suspect]
     Active Substance: VORTIOXETINE HYDROBROMIDE
     Indication: PRODUCT USED FOR UNKNOWN INDICATION
     Route: 048
     Dates: start: 201709
  4. TEMESTA                            /00273201/ [Concomitant]
     Active Substance: LORAZEPAM
     Indication: PRODUCT USED FOR UNKNOWN INDICATION
     Route: 048
  5. ICAZ [Concomitant]
     Active Substance: ISRADIPINE
     Indication: HYPERTENSION
  6. BRINTELLIX [Suspect]
     Active Substance: VORTIOXETINE HYDROBROMIDE
     Indication: AFFECTIVE DISORDER
     Route: 048
     Dates: start: 20170901
  7. THERALENE [Suspect]
     Active Substance: TRIMEPRAZINE
     Indication: PRODUCT USED FOR UNKNOWN INDICATION
     Dosage: ()
     Route: 048
     Dates: start: 201709
  8. ICAZ [Concomitant]
     Active Substance: ISRADIPINE
     Indication: HYPERTENSION
     Dosage: 5 MILLIGRAM
     Route: 048
  9. DEPAMIDE [Suspect]
     Active Substance: VALPROMIDE
     Indication: AFFECTIVE DISORDER
     Route: 048
     Dates: start: 20170901, end: 20171109
  10. ATORVASTATIN [Suspect]
     Active Substance: ATORVASTATIN
     Indication: HYPERCHOLESTEROLAEMIA
     Route: 048
     Dates: end: 20171109

REACTIONS (3)
  - Hepatitis acute [Recovered/Resolved]
  - Cholestasis [Recovering/Resolving]
  - Hepatocellular injury [Recovered/Resolved]

NARRATIVE: CASE EVENT DATE: 20171107
